FAERS Safety Report 19251162 (Version 1)
Quarter: 2021Q2

REPORT INFORMATION
  Report Type: Spontaneous
  Country: NO (occurrence: NO)
  Receive Date: 20210512
  Receipt Date: 20210512
  Transmission Date: 20210717
  Serious: Yes (Other)
  Sender: FDA-Public Use
  Company Number: NO-ELI_LILLY_AND_COMPANY-NO202105001518

PATIENT
  Age: 47 Year
  Sex: Female

DRUGS (1)
  1. EMGALITY [Suspect]
     Active Substance: GALCANEZUMAB-GNLM
     Indication: MIGRAINE
     Dosage: 1 DOSAGE FORM, EVERY 4 WEEKS
     Route: 065
     Dates: start: 202005, end: 202007

REACTIONS (5)
  - Arthralgia [Recovered/Resolved with Sequelae]
  - Myalgia [Recovered/Resolved]
  - Headache [Unknown]
  - Fatigue [Unknown]
  - Drug effect less than expected [Unknown]

NARRATIVE: CASE EVENT DATE: 202006
